FAERS Safety Report 19291442 (Version 3)
Quarter: 2021Q2

REPORT INFORMATION
  Report Type: Spontaneous
  Country: DE (occurrence: DE)
  Receive Date: 20210523
  Receipt Date: 20210606
  Transmission Date: 20210717
  Serious: Yes (Other)
  Sender: FDA-Public Use
  Company Number: DE-TEVA-2021-DE-1912882

PATIENT
  Sex: Female

DRUGS (3)
  1. FOSTER 200 MIKROGRAMM/6 MIKROGRAMM PRO INHALATION DRUCKGASINHALATION [Concomitant]
     Indication: ASTHMA
     Dosage: ONE STROKE IN THE MORNING AND IN THE EVENING, 2 DF
     Route: 055
  2. EZETIMIB [Suspect]
     Active Substance: EZETIMIBE
     Indication: BLOOD CHOLESTEROL INCREASED
     Dosage: 1 DOSAGE FORMS DAILY; EVERY EVENING
     Route: 048
     Dates: start: 20200813, end: 20210417
  3. THYRONAJOD 100 HENNING [Concomitant]
     Dosage: 1 DOSAGE FORMS DAILY; IN THE MORNING ON AN EMPTY STOMACH FOR ABOUT 40 YEARS
     Route: 048

REACTIONS (6)
  - Gait disturbance [Recovering/Resolving]
  - Hypotonia [Recovered/Resolved]
  - Vision blurred [Recovered/Resolved]
  - Fatigue [Recovered/Resolved]
  - Bursitis [Recovered/Resolved]
  - Muscle rupture [Recovered/Resolved]

NARRATIVE: CASE EVENT DATE: 2020
